FAERS Safety Report 23777635 (Version 2)
Quarter: 2024Q2

REPORT INFORMATION
  Report Type: Spontaneous
  Country: US (occurrence: US)
  Receive Date: 20240424
  Receipt Date: 20240430
  Transmission Date: 20240716
  Serious: No
  Sender: FDA-Public Use
  Company Number: US-PFIZER INC-202400076352

PATIENT
  Age: 80 Year
  Sex: Female

DRUGS (1)
  1. ESTRING [Suspect]
     Active Substance: ESTRADIOL
     Indication: Uterine prolapse
     Dosage: UNK

REACTIONS (4)
  - Device use issue [Unknown]
  - Illness [Unknown]
  - Mobility decreased [Unknown]
  - Off label use [Unknown]
